FAERS Safety Report 6809008-X (Version None)
Quarter: 2010Q2

REPORT INFORMATION
  Report Type: 
  Country: None (occurrence: None)
  Receive Date: 20100630
  Receipt Date: 20091109
  Transmission Date: 20101027
  Serious: Yes (Other)
  Sender: FDA-Public Use
  Company Number: US-PFIZER INC-2009238111

PATIENT
  Sex: Male
  Weight: 109 kg

DRUGS (2)
  1. BEXTRA [Suspect]
     Indication: MUSCLE STRAIN
     Dosage: 20 MG, 1X/DAY
     Route: 048
     Dates: start: 20040107, end: 20040830
  2. BEXTRA [Suspect]
     Indication: ARTHROPATHY

REACTIONS (1)
  - RENAL FAILURE [None]
